FAERS Safety Report 19926567 (Version 1)
Quarter: 2021Q4

REPORT INFORMATION
  Report Type: Spontaneous
  Country: US (occurrence: US)
  Receive Date: 20211006
  Receipt Date: 20211006
  Transmission Date: 20220303
  Serious: Yes (Hospitalization, Other)
  Sender: FDA-Public Use
  Company Number: US-SA-2021SA328790

PATIENT
  Age: 32 Year
  Sex: Female

DRUGS (1)
  1. DUPILUMAB [Suspect]
     Active Substance: DUPILUMAB
     Indication: Dermatitis atopic
     Dosage: UNK

REACTIONS (11)
  - Guillain-Barre syndrome [Unknown]
  - Motor dysfunction [Unknown]
  - Arthralgia [Unknown]
  - Dry eye [Unknown]
  - Muscular weakness [Unknown]
  - Grip strength decreased [Unknown]
  - Gait disturbance [Unknown]
  - Quadriparesis [Unknown]
  - Xerophthalmia [Unknown]
  - Myopathy [Unknown]
  - Movement disorder [Unknown]
